FAERS Safety Report 10747343 (Version 1)
Quarter: 2015Q1

REPORT INFORMATION
  Report Type: Spontaneous
  Country: US (occurrence: US)
  Receive Date: 20150129
  Receipt Date: 20150129
  Transmission Date: 20150721
  Serious: Yes (Death)
  Sender: FDA-Public Use
  Company Number: US-ROCHE-1527932

PATIENT
  Age: 68 Year
  Sex: Female

DRUGS (19)
  1. NUTROPIN AQ [Suspect]
     Active Substance: SOMATROPIN
     Indication: HYPOTHYROIDISM
     Dosage: 10MG/2
     Route: 058
     Dates: start: 20110816, end: 20150116
  2. PRAZOSIN [Concomitant]
     Active Substance: PRAZOSIN
     Route: 065
     Dates: start: 20140804
  3. RESTASIS [Concomitant]
     Active Substance: CYCLOSPORINE
     Route: 065
     Dates: start: 20110806
  4. VITAMIN D3 [Concomitant]
     Active Substance: CHOLECALCIFEROL
     Dosage: 5000 UNIT CAPSULE
     Route: 065
     Dates: start: 20110806
  5. CALCIUM CITRATE [Concomitant]
     Active Substance: CALCIUM CITRATE
     Route: 065
     Dates: start: 20110806
  6. OXCARBAZEPINE. [Concomitant]
     Active Substance: OXCARBAZEPINE
     Route: 065
     Dates: start: 20140915
  7. MIRAPEX [Concomitant]
     Active Substance: PRAMIPEXOLE DIHYDROCHLORIDE
     Route: 065
     Dates: start: 20110806
  8. CELEXA (UNITED STATES) [Concomitant]
     Route: 065
     Dates: start: 20110806
  9. GUAIATUSSIN AC [Concomitant]
     Active Substance: CODEINE PHOSPHATE\GUAIFENESIN
     Route: 065
     Dates: start: 20150109
  10. ASPIRIN. [Concomitant]
     Active Substance: ASPIRIN
     Route: 065
     Dates: start: 20110806
  11. NUTROPIN AQ [Suspect]
     Active Substance: SOMATROPIN
     Dosage: DOSE: 10MG/2ML
     Route: 065
     Dates: start: 20110806
  12. LORAZEPAM. [Concomitant]
     Active Substance: LORAZEPAM
     Route: 065
     Dates: start: 20150115
  13. RESTASIS [Concomitant]
     Active Substance: CYCLOSPORINE
     Route: 047
     Dates: start: 20141021
  14. LEVOTHYROXINE [Concomitant]
     Active Substance: LEVOTHYROXINE
     Route: 065
     Dates: start: 20140813
  15. CITALOPRAM [Concomitant]
     Active Substance: CITALOPRAM HYDROBROMIDE
     Route: 065
     Dates: start: 20141006
  16. PRAZOSIN [Concomitant]
     Active Substance: PRAZOSIN
     Route: 065
     Dates: start: 20110806
  17. DEPLIN [Concomitant]
     Active Substance: LEVOMEFOLATE CALCIUM
     Route: 065
     Dates: start: 20110806
  18. PRAMIPEXOLE [Concomitant]
     Active Substance: PRAMIPEXOLE
     Route: 065
     Dates: start: 20141203
  19. VITAMIN B12 [Concomitant]
     Active Substance: CYANOCOBALAMIN
     Dosage: 2500MCG
     Route: 065
     Dates: start: 20110806

REACTIONS (1)
  - Cardiac failure [Fatal]

NARRATIVE: CASE EVENT DATE: 20150116
